FAERS Safety Report 4813988-1 (Version None)
Quarter: 2005Q4

REPORT INFORMATION
  Report Type: 
  Country: None (occurrence: None)
  Receive Date: 20051028
  Receipt Date: 20050111
  Transmission Date: 20060501
  Serious: No
  Sender: FDA-Public Use
  Company Number: US-GLAXOSMITHKLINE-A0540285A

PATIENT
  Age: 62 Year
  Sex: Female

DRUGS (4)
  1. SEREVENT [Suspect]
     Indication: EMPHYSEMA
     Dosage: 1PUFF PER DAY
     Route: 055
     Dates: start: 20041101
  2. LIPITOR [Concomitant]
  3. VASOTEC [Concomitant]
  4. HYDROCHLOROTHIAZIDE [Concomitant]

REACTIONS (2)
  - DYSPNOEA EXERTIONAL [None]
  - FORCED EXPIRATORY VOLUME DECREASED [None]
